FAERS Safety Report 8199036-7 (Version None)
Quarter: 2012Q1

REPORT INFORMATION
  Report Type: 
  Country: None (occurrence: None)
  Receive Date: 20120309
  Receipt Date: 20120211
  Transmission Date: 20120608
  Serious: Yes (Death, Hospitalization)
  Sender: FDA-Public Use
  Company Number: US-GLAXOSMITHKLINE-A0965923A

PATIENT
  Age: 56 Year
  Sex: Female
  Weight: 101.4 kg

DRUGS (15)
  1. FLOLAN [Suspect]
     Indication: COR PULMONALE CHRONIC
     Dosage: 8.25NGKM UNKNOWN
     Route: 065
     Dates: start: 20120131
  2. DEMADEX [Concomitant]
  3. TUSSIONEX [Concomitant]
  4. ASPIRIN [Concomitant]
  5. GLIMEPIRIDE [Concomitant]
  6. POTASSIUM [Concomitant]
  7. SIMVASTATIN [Concomitant]
  8. LOSARTAN POTASSIUM [Concomitant]
  9. ALDACTONE [Concomitant]
  10. METFORMIN HYDROCHLORIDE [Concomitant]
  11. COUMADIN [Concomitant]
     Dosage: 2.5MG PER DAY
  12. GABAPENTIN [Concomitant]
  13. TYLENOL [Concomitant]
  14. HYDROXYZINE [Concomitant]
  15. OMEPRAZOLE [Concomitant]

REACTIONS (3)
  - DEATH [None]
  - HAEMOPTYSIS [None]
  - DYSPNOEA [None]
